FAERS Safety Report 4654378-4 (Version None)
Quarter: 2005Q2

REPORT INFORMATION
  Report Type: 
  Country: None (occurrence: None)
  Receive Date: 20050506
  Receipt Date: 20050422
  Transmission Date: 20051028
  Serious: Yes (Other)
  Sender: FDA-Public Use
  Company Number: TR-JNJFOC-20050406095

PATIENT
  Age: 52 Year
  Sex: Female

DRUGS (5)
  1. REMICADE [Suspect]
     Indication: RHEUMATOID ARTHRITIS
     Dosage: 3MG/KG
     Route: 042
  2. METHOTREXATE [Concomitant]
  3. CORTICOSTEROID [Concomitant]
  4. SULPHASALASINE [Concomitant]
  5. RANTUDIL [Concomitant]
     Indication: RHEUMATOID ARTHRITIS

REACTIONS (1)
  - LUPUS-LIKE SYNDROME [None]
